FAERS Safety Report 10041824 (Version 1)
Quarter: 2014Q1

REPORT INFORMATION
  Report Type: Spontaneous
  Country: US (occurrence: None)
  Receive Date: 20140325
  Receipt Date: 20140325
  Transmission Date: 20141002
  Serious: Yes (Death)
  Sender: FDA-Public Use
  Company Number: AUR-APL-2014-03464

PATIENT
  Age: 88 Year
  Sex: Female

DRUGS (2)
  1. ATENOLOL (ATENOLOL) [Suspect]
     Indication: PRODUCT USED FOR UNKNOWN INDICATION
     Route: 048
  2. ACETAMINOPHEN (PARACETAMOL) [Suspect]

REACTIONS (1)
  - Toxicity to various agents [None]
